FAERS Safety Report 9483676 (Version 2)
Quarter: 2013Q3

REPORT INFORMATION
  Report Type: Spontaneous
  Country: US (occurrence: US)
  Receive Date: 20130828
  Receipt Date: 20130916
  Transmission Date: 20140515
  Serious: Yes (Other)
  Sender: FDA-Public Use
  Company Number: US-TEVA-428792USA

PATIENT
  Age: 33 Year
  Sex: Female
  Weight: 64.92 kg

DRUGS (3)
  1. PARAGARD 380A [Suspect]
     Indication: CONTRACEPTION
     Route: 015
     Dates: start: 20130801, end: 20130807
  2. CRYSTALLE [Concomitant]
  3. VALTREX [Concomitant]

REACTIONS (3)
  - Device dislocation [Recovered/Resolved]
  - Muscle spasms [Recovered/Resolved]
  - Menorrhagia [Recovered/Resolved]
